FAERS Safety Report 9496679 (Version 1)
Quarter: 2013Q3

REPORT INFORMATION
  Report Type: Spontaneous
  Country: KR (occurrence: None)
  Receive Date: 20130828
  Receipt Date: 20130828
  Transmission Date: 20140515
  Serious: Yes (Hospitalization)
  Sender: FDA-Public Use
  Company Number: TPA2013A06677

PATIENT
  Age: 49 Year
  Sex: Male

DRUGS (2)
  1. COLCHICINE (COLCHICINE) [Suspect]
     Indication: GOUT
     Dosage: 2.4MG (2.4MG, 1 IN 1D)
  2. CYCLOSPORINE (CICLOSPORIN) [Concomitant]

REACTIONS (3)
  - Neuropathy peripheral [None]
  - Myopathy [None]
  - Drug interaction [None]
